FAERS Safety Report 12737400 (Version 1)
Quarter: 2016Q3

REPORT INFORMATION
  Report Type: Report from Study
  Country: BR (occurrence: BR)
  Receive Date: 20160912
  Receipt Date: 20160912
  Transmission Date: 20161109
  Serious: Yes (Other)
  Sender: FDA-Public Use
  Company Number: PHHY2016BR125219

PATIENT
  Age: 79 Year
  Sex: Female
  Weight: 65 kg

DRUGS (2)
  1. DIOVAN HCT [Suspect]
     Active Substance: HYDROCHLOROTHIAZIDE\VALSARTAN
     Dosage: 1 DF(HYDROCHLOROTHIAZIDE 25 MG, VALSARTAN320 MG), QD
     Route: 048
  2. DIOVAN HCT [Suspect]
     Active Substance: HYDROCHLOROTHIAZIDE\VALSARTAN
     Indication: HYPERTENSION
     Dosage: 1 DF (HYDROCHLOROTHIAZIDE UNK, VALSARTAN 80 MG, UNK
     Route: 065
     Dates: start: 19960606

REACTIONS (6)
  - Pneumonia [Recovering/Resolving]
  - Malaise [Unknown]
  - Drug dispensing error [Unknown]
  - Fear [Unknown]
  - Leukocytosis [Unknown]
  - Cough [Unknown]

NARRATIVE: CASE EVENT DATE: 20160821
